FAERS Safety Report 21218107 (Version 1)
Quarter: 2022Q3

REPORT INFORMATION
  Report Type: Spontaneous
  Country: US (occurrence: None)
  Receive Date: 20220816
  Receipt Date: 20220816
  Transmission Date: 20221027
  Serious: Yes (Disabling)
  Sender: FDA-Public Use
  Company Number: None

PATIENT
  Age: 30 Year
  Sex: Female
  Weight: 65.77 kg

DRUGS (12)
  1. CITROMA [Suspect]
     Active Substance: MAGNESIUM CITRATE
     Indication: Constipation
     Dosage: OTHER QUANTITY : 10 OUNCES;?FREQUENCY : DAILY;?
     Route: 048
     Dates: start: 20211104, end: 20211105
  2. EFFEXOR [Concomitant]
     Active Substance: VENLAFAXINE HYDROCHLORIDE
  3. GABAPENTIN [Concomitant]
     Active Substance: GABAPENTIN
  4. SPIRONOLACTONE [Concomitant]
     Active Substance: SPIRONOLACTONE
  5. ropinorole [Concomitant]
  6. COENZYME Q10 [Concomitant]
     Active Substance: DIETARY SUPPLEMENT\UBIDECARENONE
  7. methyl B complex [Concomitant]
  8. safe + sound digestive enzymes [Concomitant]
  9. biogenesis intestinal repair complex [Concomitant]
  10. ZYRTEC [Concomitant]
     Active Substance: CETIRIZINE HYDROCHLORIDE
  11. DOCUSATE SODIUM [Concomitant]
  12. women^s once daily multivitamin [Concomitant]

REACTIONS (5)
  - Constipation [None]
  - Food allergy [None]
  - Tongue haemorrhage [None]
  - Tongue ulceration [None]
  - Tongue exfoliation [None]

NARRATIVE: CASE EVENT DATE: 20211104
